FAERS Safety Report 15404509 (Version 3)
Quarter: 2018Q4

REPORT INFORMATION
  Report Type: Report from Study
  Country: US (occurrence: US)
  Receive Date: 20180919
  Receipt Date: 20181012
  Transmission Date: 20190204
  Serious: Yes (Hospitalization)
  Sender: FDA-Public Use
  Company Number: US-TAKEDA-2017TUS025513

PATIENT
  Sex: Male

DRUGS (1)
  1. PONATINIB [Suspect]
     Active Substance: PONATINIB
     Indication: CHRONIC MYELOID LEUKAEMIA
     Dosage: 30 MG, QD
     Route: 048
     Dates: start: 20170802

REACTIONS (6)
  - Vascular occlusion [Unknown]
  - Vision blurred [Unknown]
  - Cardiac valve disease [Unknown]
  - Ocular discomfort [Unknown]
  - Bacteraemia [Unknown]
  - Joint swelling [Unknown]
